FAERS Safety Report 5075201-2 (Version None)
Quarter: 2006Q3

REPORT INFORMATION
  Report Type: 
  Country: None (occurrence: None)
  Receive Date: 20060809
  Receipt Date: 20060804
  Transmission Date: 20061208
  Serious: Yes (Hospitalization)
  Sender: FDA-Public Use
  Company Number: FR-BAYER-200610738BFR

PATIENT
  Age: 30 Year
  Sex: Male

DRUGS (4)
  1. CIFLOX [Suspect]
     Indication: SEPTIC SHOCK
     Dosage: TOTAL DAILY DOSE: 400 MG  UNIT DOSE: 200 MG
     Route: 042
     Dates: start: 20060621
  2. TIENAM [Suspect]
     Indication: SEPTIC SHOCK
     Dosage: TOTAL DAILY DOSE: 1500 MG  UNIT DOSE: 500 MG
     Route: 042
     Dates: start: 20060621
  3. LASILIX [Suspect]
     Indication: RENAL FAILURE
     Route: 042
     Dates: start: 20060621, end: 20060627
  4. ACUPAN [Suspect]
     Indication: UNEVALUABLE EVENT
     Route: 042
     Dates: start: 20060621

REACTIONS (2)
  - RENAL FAILURE [None]
  - STATUS EPILEPTICUS [None]
